FAERS Safety Report 5643431-4 (Version None)
Quarter: 2008Q1

REPORT INFORMATION
  Report Type: 
  Country: None (occurrence: None)
  Receive Date: 20080228
  Receipt Date: 20080222
  Transmission Date: 20080703
  Serious: No
  Sender: FDA-Public Use
  Company Number: US-BAXTER-2008BH001623

PATIENT
  Age: 77 Year
  Sex: Female
  Weight: 60 kg

DRUGS (6)
  1. HEPARIN SODIUM [Suspect]
     Indication: DEEP VEIN THROMBOSIS
     Dosage: DOSE UNIT:
     Route: 040
     Dates: start: 20080222, end: 20080222
  2. HEPARIN SODIUM [Suspect]
     Dosage: DOSE UNIT:
     Route: 041
     Dates: start: 20080222, end: 20080222
  3. HEPARIN SODIUM [Suspect]
     Dosage: DOSE UNIT:
     Route: 041
     Dates: start: 20080222
  4. LIPITOR [Concomitant]
     Indication: BLOOD CHOLESTEROL INCREASED
     Dosage: DOSE UNIT:UNKNOWN
     Route: 065
  5. LOPRESSOR [Concomitant]
     Indication: HYPERTENSION
     Dosage: DOSE UNIT:UNKNOWN
     Route: 065
  6. CAPOTEN [Concomitant]
     Indication: HYPERTENSION
     Dosage: DOSE UNIT:UNKNOWN
     Route: 065

REACTIONS (5)
  - ANXIETY [None]
  - FEELING HOT [None]
  - FLUSHING [None]
  - NAUSEA [None]
  - VOMITING [None]
